FAERS Safety Report 7933800-1 (Version None)
Quarter: 2011Q4

REPORT INFORMATION
  Report Type: 
  Country: None (occurrence: None)
  Receive Date: 20111122
  Receipt Date: 20111107
  Transmission Date: 20120403
  Serious: Yes (Other)
  Sender: FDA-Public Use
  Company Number: US-ROCHE-1012265

PATIENT

DRUGS (2)
  1. IXABEPILONE [Suspect]
     Indication: BREAST CANCER
     Dosage: BMS-247550: OVER 3 HRS ON DAY 1 CYCLE 1
     Route: 042
     Dates: start: 20060213, end: 20060407
  2. HERCEPTIN [Suspect]
     Indication: BREAST CANCER
     Dosage: OVER 90 MIN ON DAY 1 CYCLE 1
     Route: 042
     Dates: start: 20060213, end: 20060407

REACTIONS (2)
  - BLOOD ALKALINE PHOSPHATASE INCREASED [None]
  - CHOLESTASIS [None]
